FAERS Safety Report 15997669 (Version 2)
Quarter: 2019Q3

REPORT INFORMATION
  Report Type: Spontaneous
  Country: DE (occurrence: DE)
  Receive Date: 20190222
  Receipt Date: 20190729
  Transmission Date: 20191004
  Serious: Yes (Disabling, Other)
  Sender: FDA-Public Use
  Company Number: DE-BIOCODEX SA-201900072

PATIENT
  Sex: Male
  Weight: 24 kg

DRUGS (4)
  1. CLOBAZAM. [Concomitant]
     Active Substance: CLOBAZAM
     Indication: PRODUCT USED FOR UNKNOWN INDICATION
     Dosage: UNK
     Route: 065
     Dates: start: 201510
  2. DIACOMIT [Suspect]
     Active Substance: STIRIPENTOL
     Indication: SEVERE MYOCLONIC EPILEPSY OF INFANCY
     Dosage: 750 MG, QD
     Route: 065
     Dates: start: 201510
  3. DIACOMIT [Suspect]
     Active Substance: STIRIPENTOL
     Dosage: 1000 MG, QD
     Route: 065
     Dates: start: 201710
  4. VALPROATE [Concomitant]
     Active Substance: VALPROIC ACID
     Indication: PRODUCT USED FOR UNKNOWN INDICATION
     Dosage: UNK
     Route: 065
     Dates: start: 201510

REACTIONS (2)
  - Myopathy [Unknown]
  - Gait disturbance [Recovering/Resolving]
